FAERS Safety Report 13033454 (Version 1)
Quarter: 2016Q4

REPORT INFORMATION
  Report Type: Spontaneous
  Country: US (occurrence: US)
  Receive Date: 20161216
  Receipt Date: 20161216
  Transmission Date: 20170207
  Serious: Yes (Hospitalization, Other)
  Sender: FDA-Public Use
  Company Number: US-AMGEN-USASP2016175481

PATIENT
  Age: 72 Year
  Sex: Female

DRUGS (1)
  1. PROLIA [Suspect]
     Active Substance: DENOSUMAB
     Indication: OSTEOPOROSIS POSTMENOPAUSAL
     Dosage: 60 MG (1 ML), Q6MO
     Route: 065

REACTIONS (7)
  - Pain in extremity [Unknown]
  - Meniscus injury [Unknown]
  - Synovial rupture [Unknown]
  - Blood cholesterol increased [Unknown]
  - Activities of daily living impaired [Unknown]
  - Ulcer haemorrhage [Not Recovered/Not Resolved]
  - Urinary tract infection [Recovered/Resolved]

NARRATIVE: CASE EVENT DATE: 201611
